FAERS Safety Report 18181758 (Version 4)
Quarter: 2020Q4

REPORT INFORMATION
  Report Type: Spontaneous
  Country: US (occurrence: MX)
  Receive Date: 20200821
  Receipt Date: 20201027
  Transmission Date: 20210113
  Serious: Yes (Hospitalization, Other)
  Sender: FDA-Public Use
  Company Number: MX-BIOMARINAP-MX-2020-131778

PATIENT
  Age: 19 Year
  Sex: Female
  Weight: 28 kg

DRUGS (1)
  1. ALDURAZYME [Suspect]
     Active Substance: LARONIDASE
     Indication: MUCOPOLYSACCHARIDOSIS I
     Dosage: UNK UNK, QW
     Route: 041
     Dates: start: 202008

REACTIONS (9)
  - Aphasia [Recovering/Resolving]
  - Asphyxia [Recovered/Resolved]
  - Dysphagia [Recovering/Resolving]
  - Productive cough [Recovered/Resolved]
  - Head injury [Not Recovered/Not Resolved]
  - Respiratory distress [Recovering/Resolving]
  - Cyanosis [Recovered/Resolved]
  - Fall [Not Recovered/Not Resolved]
  - Syncope [Recovered/Resolved]

NARRATIVE: CASE EVENT DATE: 2020
